FAERS Safety Report 24767105 (Version 1)
Quarter: 2024Q4

REPORT INFORMATION
  Report Type: Report from Study
  Country: CA (occurrence: CA)
  Receive Date: 20241223
  Receipt Date: 20241223
  Transmission Date: 20250114
  Serious: Yes (Death, Other)
  Sender: SANDOZ
  Company Number: CA-002147023-NVSC2022CA101665

PATIENT
  Sex: Male
  Weight: 95 kg

DRUGS (2)
  1. PIRFENIDONE [Suspect]
     Active Substance: PIRFENIDONE
     Indication: Idiopathic pulmonary fibrosis
     Dosage: 801 MG, QD
     Route: 065
     Dates: start: 20210501
  2. ESBRIET [Concomitant]
     Active Substance: PIRFENIDONE
     Indication: Product used for unknown indication
     Dosage: UNK
     Route: 065

REACTIONS (6)
  - Death [Fatal]
  - Restrictive pulmonary disease [Unknown]
  - Obstructive airways disorder [Unknown]
  - Forced vital capacity decreased [Unknown]
  - Lung diffusion test decreased [Unknown]
  - Cough [Unknown]
